FAERS Safety Report 24648254 (Version 1)
Quarter: 2024Q4

REPORT INFORMATION
  Report Type: Spontaneous
  Country: US (occurrence: None)
  Receive Date: 20241121
  Receipt Date: 20241121
  Transmission Date: 20250114
  Serious: Yes (Hospitalization)
  Sender: Public
  Company Number: None

PATIENT
  Age: 52 Year
  Sex: Female
  Weight: 80.3 kg

DRUGS (5)
  1. GAMUNEX-C [Suspect]
     Active Substance: HUMAN IMMUNOGLOBULIN G
     Indication: Small fibre neuropathy
     Dosage: OTHER FREQUENCY : X3 DAYS EVERY 4 WE;?
     Route: 042
     Dates: start: 20241111, end: 20241113
  2. GAMUNEX-C [Suspect]
     Active Substance: HUMAN IMMUNOGLOBULIN G
     Indication: Small fibre neuropathy
     Dosage: OTHER FREQUENCY : X3 DAYS EVERY 4 WE;?
     Route: 042
     Dates: start: 20241111, end: 20241113
  3. Gamunex-C 5g/50ML [Concomitant]
  4. Gamunex-C 10g/100M [Concomitant]
  5. Gamunex-C 20g/200ML [Concomitant]

REACTIONS (5)
  - Headache [None]
  - Nausea [None]
  - Vomiting [None]
  - Hypophagia [None]
  - Cough [None]

NARRATIVE: CASE EVENT DATE: 20241117
